FAERS Safety Report 14238065 (Version 1)
Quarter: 2017Q4

REPORT INFORMATION
  Report Type: Spontaneous
  Country: US (occurrence: US)
  Receive Date: 20171130
  Receipt Date: 20171130
  Transmission Date: 20180321
  Serious: No
  Sender: FDA-Public Use
  Company Number: US-TEVA-741298USA

PATIENT
  Sex: Male

DRUGS (1)
  1. LORATADINE. [Suspect]
     Active Substance: LORATADINE

REACTIONS (2)
  - Drug prescribing error [Unknown]
  - Drug ineffective [Unknown]
